FAERS Safety Report 4778142-0 (Version None)
Quarter: 2005Q3

REPORT INFORMATION
  Report Type: 
  Country: None (occurrence: None)
  Receive Date: 20050923
  Receipt Date: 20050923
  Transmission Date: 20060218
  Serious: Yes (Other)
  Sender: FDA-Public Use
  Company Number: None

PATIENT
  Age: 68 Year
  Sex: Female
  Weight: 67 kg

DRUGS (2)
  1. NITROFURANTOIN [Suspect]
     Indication: URINARY TRACT INFECTION
     Dosage: 100 MG PO BID
     Route: 048
     Dates: start: 20050913, end: 20050920
  2. METHADONE 10MG [Suspect]
     Indication: PAIN
     Dosage: 10 MG PO Q8H
     Route: 048
     Dates: start: 20050912, end: 20050920

REACTIONS (6)
  - ABNORMAL BEHAVIOUR [None]
  - AGITATION [None]
  - AMNESIA [None]
  - DISORIENTATION [None]
  - DRUG LEVEL INCREASED [None]
  - PSYCHOTIC DISORDER [None]
